FAERS Safety Report 10142194 (Version 1)
Quarter: 2014Q2

REPORT INFORMATION
  Report Type: Spontaneous
  Country: US (occurrence: US)
  Receive Date: 20140430
  Receipt Date: 20140430
  Transmission Date: 20141212
  Serious: No
  Sender: FDA-Public Use
  Company Number: US-SANOFI-AVENTIS-2013SA078185

PATIENT
  Sex: Female

DRUGS (1)
  1. CLOMID [Suspect]
     Route: 048

REACTIONS (3)
  - Feeling abnormal [Unknown]
  - Weight increased [Unknown]
  - Drug ineffective [Unknown]
